FAERS Safety Report 9147732 (Version 2)
Quarter: 2013Q2

REPORT INFORMATION
  Report Type: Spontaneous
  Country: DE (occurrence: DE)
  Receive Date: 20130307
  Receipt Date: 20130501
  Transmission Date: 20140414
  Serious: Yes (Hospitalization, Other)
  Sender: FDA-Public Use
  Company Number: DE-UCBSA-079780

PATIENT
  Sex: Male
  Weight: 19 kg

DRUGS (4)
  1. KEPPRA ORAL SOLUTION [Suspect]
     Indication: EPILEPSY
     Dosage: 250 MG+500 MG, SYRUP
     Route: 048
     Dates: start: 20121201
  2. KEPPRA TABLETS [Suspect]
     Dosage: 250 MG IN THE MORNING AND 500 MG IN THE EVENING
     Dates: start: 2013
  3. LEVETIRACETAM [Suspect]
     Route: 048
     Dates: start: 2013, end: 2013
  4. OSPOLOT [Concomitant]
     Indication: EPILEPSY
     Dosage: 100 MG
     Dates: start: 20120820

REACTIONS (11)
  - Status epilepticus [Unknown]
  - Tremor [Recovering/Resolving]
  - Gait disturbance [Recovering/Resolving]
  - Fatigue [Recovering/Resolving]
  - Sluggishness [Recovering/Resolving]
  - Balance disorder [Unknown]
  - Infection [Unknown]
  - Weight decreased [Unknown]
  - Ataxia [Unknown]
  - Wrong technique in drug usage process [Unknown]
  - Product substitution issue [None]
